FAERS Safety Report 5736774-7 (Version None)
Quarter: 2008Q2

REPORT INFORMATION
  Report Type: 
  Country: None (occurrence: None)
  Receive Date: 20080508
  Receipt Date: 20080424
  Transmission Date: 20081010
  Serious: Yes (Other)
  Sender: FDA-Public Use
  Company Number: 220001L08GBR

PATIENT
  Age: 11 Year
  Sex: Female

DRUGS (1)
  1. SOMATROPIN (SOMATROPIN ) [Suspect]
     Indication: BODY HEIGHT BELOW NORMAL

REACTIONS (2)
  - BRAIN NEOPLASM MALIGNANT [None]
  - DISEASE RECURRENCE [None]
